FAERS Safety Report 8791642 (Version 3)
Quarter: 2012Q4

REPORT INFORMATION
  Report Type: Report from Study
  Country: US (occurrence: US)
  Receive Date: 20120918
  Receipt Date: 20121008
  Transmission Date: 20130627
  Serious: Yes (Hospitalization, Other)
  Sender: FDA-Public Use
  Company Number: US-JNJFOC-20120907091

PATIENT
  Age: 23 Year
  Sex: Male
  Weight: 62.6 kg

DRUGS (10)
  1. PALIPERIDONE PALMITATE [Suspect]
     Indication: SCHIZOPHRENIA
     Route: 030
     Dates: start: 20120906
  2. PALIPERIDONE PALMITATE [Suspect]
     Indication: SCHIZOPHRENIA
     Route: 030
     Dates: start: 20120830
  3. HALDOL [Concomitant]
     Indication: SCHIZOPHRENIA
     Route: 065
     Dates: end: 20120821
  4. RISPERDAL [Concomitant]
     Indication: SCHIZOPHRENIA
     Route: 065
     Dates: start: 20120830, end: 20120903
  5. TEMAZEPAM [Concomitant]
     Indication: SUICIDAL IDEATION
     Route: 065
     Dates: start: 20120911
  6. TEMAZEPAM [Concomitant]
     Indication: SUICIDAL IDEATION
     Route: 065
     Dates: start: 20120821, end: 20120830
  7. TEMAZEPAM [Concomitant]
     Indication: ANXIETY
     Route: 065
     Dates: start: 20120911
  8. TEMAZEPAM [Concomitant]
     Indication: ANXIETY
     Route: 065
     Dates: start: 20120821, end: 20120830
  9. TEMAZEPAM [Concomitant]
     Indication: INSOMNIA
     Route: 065
     Dates: start: 20120911
  10. TEMAZEPAM [Concomitant]
     Indication: INSOMNIA
     Route: 065
     Dates: start: 20120821, end: 20120830

REACTIONS (2)
  - Suicidal ideation [Recovered/Resolved]
  - Anxiety [Recovered/Resolved]
